FAERS Safety Report 15590618 (Version 3)
Quarter: 2019Q2

REPORT INFORMATION
  Report Type: Report from Study
  Country: JP (occurrence: JP)
  Receive Date: 20181106
  Receipt Date: 20190620
  Transmission Date: 20190711
  Serious: Yes (Death)
  Sender: FDA-Public Use
  Company Number: JP-AMGEN-JPNCT2018156480

PATIENT
  Age: 87 Year
  Sex: Male

DRUGS (6)
  1. MAGMITT [Concomitant]
     Active Substance: MAGNESIUM OXIDE
     Indication: CONSTIPATION
     Dosage: 1500 MILLIGRAM
     Route: 048
     Dates: end: 20170114
  2. FUROSEMIDE. [Concomitant]
     Active Substance: FUROSEMIDE
     Dosage: 20 MILLIGRAM
     Route: 048
     Dates: start: 20170126, end: 20170207
  3. TAKECAB [Concomitant]
     Active Substance: VONOPRAZAN FUMURATE
     Dosage: 20 MILLIGRAM
     Route: 048
  4. PREDONINE [Concomitant]
     Active Substance: PREDNISOLONE
     Indication: ARTHRITIS
     Dosage: 8 MILLIGRAM
     Route: 048
  5. HEPARINOID [Concomitant]
     Active Substance: CHONDROITIN SULFATE (BOVINE)
     Indication: XERODERMA
     Dosage: UNK
     Route: 061
  6. DARBEPOETIN ALFA [Suspect]
     Active Substance: DARBEPOETIN ALFA
     Indication: MYELODYSPLASTIC SYNDROME
     Dosage: 240 MICROGRAM, QWK
     Route: 058
     Dates: start: 20170105, end: 20170323

REACTIONS (2)
  - Oedema [Recovered/Resolved]
  - Pulmonary alveolar haemorrhage [Fatal]

NARRATIVE: CASE EVENT DATE: 20170126
